FAERS Safety Report 24294302 (Version 1)
Quarter: 2024Q3

REPORT INFORMATION
  Report Type: Spontaneous
  Country: US (occurrence: None)
  Receive Date: 20240905
  Receipt Date: 20240905
  Transmission Date: 20241016
  Serious: Yes (Disabling, Other)
  Sender: Public
  Company Number: None

PATIENT
  Age: 47 Year
  Sex: Female
  Weight: 120.15 kg

DRUGS (19)
  1. METHYLPHENIDATE [Suspect]
     Active Substance: METHYLPHENIDATE
     Indication: Attention deficit hyperactivity disorder
     Dosage: OTHER QUANTITY : 1 TABLET(S);?FREQUENCY : TWICE A DAY;?
     Route: 048
     Dates: start: 20230328, end: 20240315
  2. METHYLPHENIDATE [Suspect]
     Active Substance: METHYLPHENIDATE
     Indication: Attention deficit hyperactivity disorder
     Dosage: OTHER QUANTITY : 2 TABLET(S);?FREQUENCY : TWICE A DAY;?
     Route: 048
     Dates: start: 20230601, end: 20240315
  3. STRATTERA [Suspect]
     Active Substance: ATOMOXETINE HYDROCHLORIDE
     Dosage: FREQUENCY : DAILY;?
  4. flexeril 10 mg [Concomitant]
  5. xanax .05 [Concomitant]
  6. METFORMIN [Concomitant]
     Active Substance: METFORMIN HYDROCHLORIDE
  7. jardiance 25 mg [Concomitant]
  8. pravachol 20 mg [Concomitant]
  9. sertraline 200 mg [Concomitant]
  10. Requip 3 mg [Concomitant]
  11. Mobic 15 mg [Concomitant]
  12. OZEMPIC [Concomitant]
  13. Adderall-15mg [Concomitant]
  14. VITAMIN D2 [Concomitant]
  15. Myrbetriq 50 ER [Concomitant]
  16. lisinopril 5 mg [Concomitant]
  17. Gabapentin 600 mg [Concomitant]
  18. toujeu 150 unit [Concomitant]
  19. oxycodone 10 mg [Concomitant]

REACTIONS (7)
  - Drug ineffective [None]
  - Product availability issue [None]
  - Gambling disorder [None]
  - Compulsive shopping [None]
  - Job dissatisfaction [None]
  - Legal problem [None]
  - Personality disorder [None]

NARRATIVE: CASE EVENT DATE: 20240328
